FAERS Safety Report 25525421 (Version 1)
Quarter: 2025Q3

REPORT INFORMATION
  Report Type: Spontaneous
  Country: US (occurrence: US)
  Receive Date: 20250707
  Receipt Date: 20250707
  Transmission Date: 20251021
  Serious: Yes (Hospitalization)
  Sender: MYLAN
  Company Number: US-MYLANLABS-2025M1055378

PATIENT
  Sex: Male

DRUGS (12)
  1. HALOPERIDOL [Suspect]
     Active Substance: HALOPERIDOL
     Indication: Hallucination
  2. HALOPERIDOL [Suspect]
     Active Substance: HALOPERIDOL
     Indication: Imperception
  3. LORAZEPAM [Suspect]
     Active Substance: LORAZEPAM
     Indication: Hallucination
  4. LORAZEPAM [Suspect]
     Active Substance: LORAZEPAM
     Indication: Imperception
  5. CARBAMAZEPINE [Suspect]
     Active Substance: CARBAMAZEPINE
     Indication: Hallucination
  6. CARBAMAZEPINE [Suspect]
     Active Substance: CARBAMAZEPINE
  7. BUPROPION [Suspect]
     Active Substance: BUPROPION
     Indication: Hallucination
  8. BUPROPION [Suspect]
     Active Substance: BUPROPION
     Indication: Imperception
  9. OLANZAPINE [Suspect]
     Active Substance: OLANZAPINE
     Indication: Hallucination
  10. OLANZAPINE [Suspect]
     Active Substance: OLANZAPINE
     Indication: Imperception
  11. GUANFACINE [Concomitant]
     Active Substance: GUANFACINE
     Indication: Hallucination
  12. GUANFACINE [Concomitant]
     Active Substance: GUANFACINE
     Indication: Imperception

REACTIONS (3)
  - Hallucination [Unknown]
  - Imperception [Unknown]
  - Condition aggravated [Unknown]
